FAERS Safety Report 9965072 (Version 1)
Quarter: 2014Q1

REPORT INFORMATION
  Report Type: Report from Study
  Country: US (occurrence: US)
  Receive Date: 20140305
  Receipt Date: 20140305
  Transmission Date: 20141002
  Serious: No
  Sender: FDA-Public Use
  Company Number: US-ABBVIE-13P-163-1124191-00

PATIENT
  Sex: Female

DRUGS (3)
  1. HUMIRA [Suspect]
     Indication: ANKYLOSING SPONDYLITIS
     Dates: start: 201303
  2. CITALOPRAM [Concomitant]
     Indication: ANXIETY
  3. ZANTAC [Concomitant]
     Indication: GASTRIC DISORDER

REACTIONS (2)
  - Injection site bruising [Recovered/Resolved]
  - Injection site pain [Recovered/Resolved]
